FAERS Safety Report 15770461 (Version 1)
Quarter: 2018Q4

REPORT INFORMATION
  Report Type: Spontaneous
  Country: US (occurrence: US)
  Receive Date: 20181218
  Receipt Date: 20181218
  Transmission Date: 20190205
  Serious: No
  Sender: FDA-Public Use
  Company Number: None

PATIENT

DRUGS (1)
  1. TRANSDERMAL SCOPOLAMINE 1.5 [Suspect]
     Active Substance: SCOPOLAMINE

REACTIONS (5)
  - Asthenia [None]
  - Wrong technique in device usage process [None]
  - Lethargy [None]
  - Dizziness [None]
  - Incorrect product administration duration [None]
